FAERS Safety Report 5658331-3 (Version None)
Quarter: 2008Q1

REPORT INFORMATION
  Report Type: 
  Country: None (occurrence: None)
  Receive Date: 20080310
  Receipt Date: 20070130
  Transmission Date: 20080703
  Serious: No
  Sender: FDA-Public Use
  Company Number: US-BAYER-200710346BCC

PATIENT
  Age: 78 Year
  Sex: Female
  Weight: 56 kg

DRUGS (7)
  1. ALEVE [Suspect]
     Indication: ARTHRALGIA
     Dosage: TOTAL DAILY DOSE: 220 MG  UNIT DOSE: 220 MG
     Route: 048
     Dates: start: 20070120
  2. GLUCOSAMINE [Concomitant]
  3. TRAZODONE HCL [Concomitant]
  4. CHONDROITIN [Concomitant]
  5. OMEGA 3 [Concomitant]
  6. CALCIUM [Concomitant]
  7. WALGREEN A THRU Z VITAMIN [Concomitant]

REACTIONS (2)
  - ABDOMINAL PAIN UPPER [None]
  - DIARRHOEA [None]
